FAERS Safety Report 16290498 (Version 1)
Quarter: 2019Q2

REPORT INFORMATION
  Report Type: Spontaneous
  Country: US (occurrence: US)
  Receive Date: 20190508
  Receipt Date: 20190508
  Transmission Date: 20190711
  Serious: Yes (Other)
  Sender: FDA-Public Use
  Company Number: None

PATIENT
  Age: 70 Year
  Sex: Male
  Weight: 114.75 kg

DRUGS (4)
  1. LOSARTIN [Concomitant]
     Active Substance: LOSARTAN
  2. AMLODIPENE [Concomitant]
  3. CEPACOL EXTRA STRENGTH SORE THROAT CHERRY [Suspect]
     Active Substance: BENZOCAINE\DEXTROMETHORPHAN HYDROBROMIDE
     Indication: OROPHARYNGEAL PAIN
     Dosage: ?          QUANTITY:1 LOZENGE;?
     Route: 048
     Dates: start: 20190506, end: 20190506
  4. ATORVASTATIN [Concomitant]
     Active Substance: ATORVASTATIN

REACTIONS (5)
  - Hypoaesthesia oral [None]
  - Swollen tongue [None]
  - Throat tightness [None]
  - Hyperhidrosis [None]
  - Poverty of speech [None]

NARRATIVE: CASE EVENT DATE: 20190506
